FAERS Safety Report 14691772 (Version 1)
Quarter: 2018Q1

REPORT INFORMATION
  Report Type: Spontaneous
  Country: US (occurrence: US)
  Receive Date: 20180329
  Receipt Date: 20180329
  Transmission Date: 20180509
  Serious: Yes (Death)
  Sender: FDA-Public Use
  Company Number: US-INSYS THERAPEUTICS, INC-INS201803-000102

PATIENT
  Sex: Female

DRUGS (3)
  1. OXYCONTIN [Concomitant]
     Active Substance: OXYCODONE HYDROCHLORIDE
  2. SUBSYS [Suspect]
     Active Substance: FENTANYL
     Indication: PAIN
     Dates: start: 20150608
  3. HYDROMORPHONE [Concomitant]
     Active Substance: HYDROMORPHONE

REACTIONS (3)
  - Incorrect route of drug administration [Unknown]
  - Overdose [Fatal]
  - Prescription drug used without a prescription [Unknown]

NARRATIVE: CASE EVENT DATE: 20160313
